FAERS Safety Report 25094815 (Version 1)
Quarter: 2025Q1

REPORT INFORMATION
  Report Type: Spontaneous
  Country: IN (occurrence: IN)
  Receive Date: 20250319
  Receipt Date: 20250319
  Transmission Date: 20250408
  Serious: Yes (Death, Hospitalization)
  Sender: MYLAN
  Company Number: IN-MYLANLABS-2025M1023028

PATIENT
  Age: 7 Year
  Sex: Female

DRUGS (6)
  1. DEXAMETHASONE [Suspect]
     Active Substance: DEXAMETHASONE
     Indication: Toxic epidermal necrolysis
  2. CEFIXIME [Suspect]
     Active Substance: CEFIXIME
     Indication: Pyrexia
  3. CEFIXIME [Suspect]
     Active Substance: CEFIXIME
     Indication: Abdominal pain
  4. GENTAMICIN [Suspect]
     Active Substance: GENTAMICIN
     Indication: Pyrexia
  5. GENTAMICIN [Suspect]
     Active Substance: GENTAMICIN
     Indication: Abdominal pain
  6. IMMUNE GLOBULIN NOS [Suspect]
     Active Substance: IMMUNE GLOBULIN NOS
     Indication: Toxic epidermal necrolysis

REACTIONS (2)
  - Toxic epidermal necrolysis [Fatal]
  - Drug ineffective [Fatal]
